FAERS Safety Report 17706039 (Version 2)
Quarter: 2020Q2

REPORT INFORMATION
  Report Type: Spontaneous
  Country: SG (occurrence: SG)
  Receive Date: 20200424
  Receipt Date: 20200601
  Transmission Date: 20200714
  Serious: Yes (Other)
  Sender: FDA-Public Use
  Company Number: SG-GILEAD-2020-0460708

PATIENT
  Age: 74 Year
  Sex: Female

DRUGS (4)
  1. CHOLECALCIFEROL [Concomitant]
     Active Substance: CHOLECALCIFEROL
  2. LEVOTHYROXINE. [Concomitant]
     Active Substance: LEVOTHYROXINE
  3. INSULIN [Concomitant]
     Active Substance: INSULIN NOS
  4. HEPSERA [Suspect]
     Active Substance: ADEFOVIR DIPIVOXIL
     Indication: CHRONIC HEPATITIS B
     Dosage: 1 DOSAGE FORM, QOD
     Route: 065

REACTIONS (6)
  - Thoracic vertebral fracture [Recovered/Resolved]
  - Fanconi syndrome acquired [Recovered/Resolved]
  - Clavicle fracture [Recovered/Resolved]
  - Off label use [Recovered/Resolved]
  - Femur fracture [Recovered/Resolved]
  - Femoral neck fracture [Recovered/Resolved]
